FAERS Safety Report 7349148-2 (Version None)
Quarter: 2011Q1

REPORT INFORMATION
  Report Type: 
  Country: None (occurrence: None)
  Receive Date: 20110303
  Receipt Date: 20110301
  Transmission Date: 20110831
  Serious: Yes (Other)
  Sender: FDA-Public Use
  Company Number: SP03530

PATIENT
  Age: 33 Year
  Sex: Female

DRUGS (4)
  1. BISACODYL [Concomitant]
  2. SENNOSIDE [Concomitant]
  3. DIMETHICONE [Concomitant]
  4. VISICOL [Suspect]
     Indication: BOWEL PREPARATION
     Dosage: (15 GM), ORAL
     Route: 048
     Dates: start: 20110218, end: 20110218

REACTIONS (2)
  - ANAPHYLACTIC REACTION [None]
  - OEDEMA PERIPHERAL [None]
